FAERS Safety Report 9917648 (Version 2)
Quarter: 2014Q1

REPORT INFORMATION
  Report Type: Spontaneous
  Country: None (occurrence: US)
  Receive Date: 20140221
  Receipt Date: 20140221
  Transmission Date: 20141002
  Serious: No
  Sender: FDA-Public Use
  Company Number: US-ENDO PHARMACEUTICALS INC.-PREV20120013

PATIENT
  Age: 26 Year
  Sex: Female

DRUGS (1)
  1. PREVIFEM [Suspect]
     Indication: CONTRACEPTION
     Dosage: 1 TABLET
     Route: 048
     Dates: start: 201209, end: 2012

REACTIONS (2)
  - Pregnancy on oral contraceptive [Not Recovered/Not Resolved]
  - Drug ineffective [Recovered/Resolved]
